FAERS Safety Report 16422349 (Version 1)
Quarter: 2019Q2

REPORT INFORMATION
  Report Type: Spontaneous
  Country: FR (occurrence: FR)
  Receive Date: 20190612
  Receipt Date: 20190612
  Transmission Date: 20190711
  Serious: Yes (Hospitalization)
  Sender: FDA-Public Use
  Company Number: FR-ELI_LILLY_AND_COMPANY-FR201906003535

PATIENT
  Age: 74 Year
  Sex: Female

DRUGS (7)
  1. CARBOPLATINE [Suspect]
     Active Substance: CARBOPLATIN
     Dosage: 440 MG, EVERY 3 WEEKS
     Route: 042
     Dates: start: 20170821, end: 20171027
  2. GEMCITABINE HYDROCHLORIDE. [Suspect]
     Active Substance: GEMCITABINE HYDROCHLORIDE
     Indication: OVARIAN CANCER
     Dosage: 1800 MG, EVERY 3 WEEKS
     Route: 042
     Dates: start: 20160706, end: 20161107
  3. CAELYX [Suspect]
     Active Substance: DOXORUBICIN HYDROCHLORIDE
     Indication: OVARIAN CANCER
     Route: 042
     Dates: start: 20170821, end: 20171027
  4. AVASTIN [Suspect]
     Active Substance: BEVACIZUMAB
     Indication: OVARIAN CANCER
     Dosage: 1100 MG, EVERY 3 WEEKS
     Route: 042
     Dates: start: 20160706, end: 20170621
  5. PACLITAXEL. [Suspect]
     Active Substance: PACLITAXEL
     Indication: OVARIAN CANCER
     Dosage: 306 MG, EVERY 3 WEEKS
     Route: 042
     Dates: start: 20140731, end: 20141117
  6. LYNPARZA [Suspect]
     Active Substance: OLAPARIB
     Indication: OVARIAN CANCER
     Dosage: UNK UNK, UNKNOWN
     Route: 048
     Dates: start: 201711, end: 201903
  7. CARBOPLATINE [Suspect]
     Active Substance: CARBOPLATIN
     Indication: OVARIAN CANCER
     Dosage: 630 MG, EVERY 3 WEEKS
     Route: 042
     Dates: start: 20140731, end: 20141117

REACTIONS (1)
  - Acute myeloid leukaemia [Not Recovered/Not Resolved]

NARRATIVE: CASE EVENT DATE: 20190403
